FAERS Safety Report 16346565 (Version 1)
Quarter: 2019Q2

REPORT INFORMATION
  Report Type: Spontaneous
  Country: NL (occurrence: NL)
  Receive Date: 20190523
  Receipt Date: 20190523
  Transmission Date: 20190711
  Serious: Yes (Other)
  Sender: FDA-Public Use
  Company Number: NL-ACCORD-128891

PATIENT
  Age: 71 Year
  Sex: Male
  Weight: 72 kg

DRUGS (11)
  1. SPIRIVA [Concomitant]
     Active Substance: TIOTROPIUM BROMIDE MONOHYDRATE
     Dosage: 1 DD 2 INHALATIES
  2. SPIRONOLACTONE. [Concomitant]
     Active Substance: SPIRONOLACTONE
     Dosage: 1DD1
  3. PANTOPRAZOLE [Concomitant]
     Active Substance: PANTOPRAZOLE
     Dosage: 1DD1 40 MG
  4. FLUTICASONE PROPIONATE/SALMETEROL [Concomitant]
     Dosage: 2DD2 INHALATIES
  5. ATORVASTATIN [Concomitant]
     Active Substance: ATORVASTATIN
     Dosage: 1DD1
  6. NAPROXEN. [Concomitant]
     Active Substance: NAPROXEN
     Dosage: 2DD1
  7. DAGRAVIT [Concomitant]
     Dosage: 1DD1  TOTAAL 30
  8. ALLOPURINOL. [Suspect]
     Active Substance: ALLOPURINOL
     Indication: GOUTY TOPHUS
     Dosage: 1 DD ,ALSO RECEIVED 200MG 10-AUG-18,200 MG PER DAY
     Dates: start: 20180810, end: 20190111
  9. BUMETANIDE. [Concomitant]
     Active Substance: BUMETANIDE
     Dosage: 1DD3 1 MG
  10. ACENOCOUMAROL [Concomitant]
     Active Substance: ACENOCOUMAROL
     Dosage: ACCORDING TO DOSING SCHEDULE
  11. LANOXIN [Concomitant]
     Active Substance: DIGOXIN
     Dosage: 1DD1 0,125 MG

REACTIONS (3)
  - Abnormal faeces [Recovering/Resolving]
  - Abdominal pain [Recovering/Resolving]
  - Haematochezia [Recovering/Resolving]

NARRATIVE: CASE EVENT DATE: 20181205
